FAERS Safety Report 24194329 (Version 1)
Quarter: 2024Q3

REPORT INFORMATION
  Report Type: Spontaneous
  Country: US (occurrence: None)
  Receive Date: 20240808
  Receipt Date: 20240808
  Transmission Date: 20241016
  Serious: Yes (unspecified)
  Sender: Public
  Company Number: None

PATIENT
  Age: 46 Year
  Sex: Female
  Weight: 77.85 kg

DRUGS (1)
  1. VYEPTI [Suspect]
     Active Substance: EPTINEZUMAB\EPTINEZUMAB-JJMR
     Dosage: OTHER FREQUENCY : Q 3 MONTHS;?
     Route: 041
     Dates: start: 20240808, end: 20240808

REACTIONS (6)
  - Infusion site pruritus [None]
  - Cough [None]
  - Dyspnoea [None]
  - Throat irritation [None]
  - Chest discomfort [None]
  - Infusion related reaction [None]

NARRATIVE: CASE EVENT DATE: 20240808
